FAERS Safety Report 6165490-5 (Version None)
Quarter: 2009Q2

REPORT INFORMATION
  Report Type: 
  Country: None (occurrence: None)
  Receive Date: 20090421
  Receipt Date: 20090421
  Transmission Date: 20091009
  Serious: Yes (Life-Threatening, Hospitalization)
  Sender: FDA-Public Use
  Company Number: None

PATIENT
  Age: 76 Year
  Sex: Female
  Weight: 77 kg

DRUGS (2)
  1. CELECOXIB [Suspect]
  2. ASPIRIN [Suspect]

REACTIONS (2)
  - ANAEMIA [None]
  - LARGE INTESTINAL HAEMORRHAGE [None]
